FAERS Safety Report 8551933-6 (Version None)
Quarter: 2012Q3

REPORT INFORMATION
  Report Type: 
  Country: None (occurrence: None)
  Receive Date: 20120730
  Receipt Date: 20120723
  Transmission Date: 20120928
  Serious: No
  Sender: FDA-Public Use
  Company Number: JP-JNJFOC-20120707269

PATIENT
  Age: 43 Year
  Sex: Male

DRUGS (3)
  1. ITRACONAZOLE [Suspect]
     Indication: ONYCHOMYCOSIS
     Dosage: PULSE THERAPY
     Route: 048
     Dates: start: 20120421, end: 20120427
  2. PROPECIA [Concomitant]
     Indication: PRODUCT USED FOR UNKNOWN INDICATION
     Route: 048
  3. ITRACONAZOLE [Suspect]
     Dosage: PULSE THERAPY
     Route: 048
     Dates: start: 20120519, end: 20120525

REACTIONS (2)
  - FEELING ABNORMAL [None]
  - BLOOD CREATINE PHOSPHOKINASE INCREASED [None]
